FAERS Safety Report 21076741 (Version 1)
Quarter: 2022Q3

REPORT INFORMATION
  Report Type: Spontaneous
  Country: IN (occurrence: IN)
  Receive Date: 20220713
  Receipt Date: 20220713
  Transmission Date: 20221027
  Serious: Yes (Other)
  Sender: FDA-Public Use
  Company Number: IN-PFIZER INC-202200952812

PATIENT
  Age: 54 Year
  Sex: Female

DRUGS (5)
  1. PALBOCICLIB [Suspect]
     Active Substance: PALBOCICLIB
     Indication: Hormone receptor positive HER2 negative breast cancer
     Dosage: 125 MG, DAILY
     Route: 048
     Dates: start: 202201
  2. FEMARA [Concomitant]
     Active Substance: LETROZOLE
     Dosage: 1 DF, DAILY
  3. ZOLDONAT [Concomitant]
     Dosage: 4 MG, CYCLIC( 3 MONTHLY)
     Route: 042
  4. TORSEMIDE [Concomitant]
     Active Substance: TORSEMIDE
     Dosage: 10 MG, DAILY (7 DAYS)
  5. CALCIUM [Concomitant]
     Active Substance: CALCIUM
     Dosage: 1 DF, 1X/DAY

REACTIONS (10)
  - Haemoglobin decreased [Unknown]
  - White blood cell count decreased [Unknown]
  - Platelet count decreased [Unknown]
  - Peripheral swelling [Unknown]
  - Arthralgia [Unknown]
  - Back pain [Unknown]
  - Mouth ulceration [Unknown]
  - Asthenia [Unknown]
  - Blood creatinine increased [Unknown]
  - Dizziness [Unknown]

NARRATIVE: CASE EVENT DATE: 20220630
